FAERS Safety Report 11873291 (Version 1)
Quarter: 2015Q4

REPORT INFORMATION
  Report Type: Spontaneous
  Country: GB (occurrence: GB)
  Receive Date: 20151228
  Receipt Date: 20151228
  Transmission Date: 20160305
  Serious: Yes (Other)
  Sender: FDA-Public Use
  Company Number: PHHY2015GB165166

PATIENT
  Age: 68 Year
  Sex: Female
  Weight: 77.56 kg

DRUGS (2)
  1. DOXYCYCLINE. [Suspect]
     Active Substance: DOXYCYCLINE
     Indication: SINUSITIS BACTERIAL
     Dosage: 100 MG, QD
     Route: 048
     Dates: start: 20150630
  2. CHLORPHENAMINE [Interacting]
     Active Substance: CHLORPHENIRAMINE MALEATE
     Indication: SEASONAL ALLERGY
     Dosage: 4 MG, TID UP TO 3 A DAY (SPACED OUT)
     Route: 065

REACTIONS (5)
  - Malaise [Recovered/Resolved]
  - Fatigue [Recovered/Resolved]
  - Vomiting [Recovered/Resolved]
  - Migraine [Recovered/Resolved]
  - Drug interaction [Unknown]

NARRATIVE: CASE EVENT DATE: 20150630
